FAERS Safety Report 10532975 (Version 1)
Quarter: 2014Q4

REPORT INFORMATION
  Report Type: Spontaneous
  Country: US (occurrence: US)
  Receive Date: 20141022
  Receipt Date: 20141022
  Transmission Date: 20150529
  Serious: No
  Sender: FDA-Public Use
  Company Number: US-TEVA-445470USA

PATIENT

DRUGS (1)
  1. AMOXICILLIN W/CLAVULANIC ACID [Suspect]
     Active Substance: AMOXICILLIN\CLAVULANIC ACID
     Indication: SINUS HEADACHE

REACTIONS (5)
  - Product taste abnormal [Unknown]
  - Nausea [Unknown]
  - Product quality issue [Unknown]
  - Rash [Unknown]
  - Dysgeusia [Unknown]
